FAERS Safety Report 4615955-X (Version None)
Quarter: 2005Q1

REPORT INFORMATION
  Report Type: 
  Country: None (occurrence: None)
  Receive Date: 20050318
  Receipt Date: 20050307
  Transmission Date: 20050727
  Serious: Yes (Hospitalization, Other)
  Sender: FDA-Public Use
  Company Number: ZA-2005-002757

PATIENT
  Sex: Male

DRUGS (4)
  1. MABCAMPATH                  (ALEMTUZUMAB) AMPULE [Suspect]
     Indication: T-CELL LYMPHOMA
     Dosage: 30 MG, INTRAVENOUS
     Route: 042
     Dates: start: 20050103, end: 20050201
  2. IFOSFAMIDE [Concomitant]
  3. CARBOPLATIN [Concomitant]
  4. ETOPOSIDE [Concomitant]

REACTIONS (5)
  - CONFUSIONAL STATE [None]
  - EPILEPSY [None]
  - INFECTION [None]
  - POSTICTAL STATE [None]
  - PYREXIA [None]
